FAERS Safety Report 6200270-3 (Version None)
Quarter: 2009Q2

REPORT INFORMATION
  Report Type: 
  Country: None (occurrence: None)
  Receive Date: 20090522
  Receipt Date: 20090513
  Transmission Date: 20091009
  Serious: Yes (Other)
  Sender: FDA-Public Use
  Company Number: US-JNJFOC-20070806238

PATIENT
  Age: 73 Year
  Sex: Male

DRUGS (22)
  1. REMICADE [Suspect]
     Route: 042
  2. REMICADE [Suspect]
     Route: 042
  3. REMICADE [Suspect]
     Indication: RHEUMATOID ARTHRITIS
     Route: 042
  4. RITUXAN [Suspect]
     Indication: RHEUMATOID ARTHRITIS
  5. METHOTREXATE [Suspect]
     Indication: RHEUMATOID ARTHRITIS
  6. NORCO [Concomitant]
  7. KLOR-CON [Concomitant]
  8. LASIX [Concomitant]
  9. PROSCAR [Concomitant]
  10. PULMICORT-100 [Concomitant]
  11. AMARYL [Concomitant]
  12. CELEXA [Concomitant]
  13. VERAPAMIL [Concomitant]
  14. ZOVIRAX [Concomitant]
  15. LIPITOR [Concomitant]
  16. NEXIUM [Concomitant]
  17. PLAVIX [Concomitant]
  18. LIDODERM [Concomitant]
  19. ACIPHEX [Concomitant]
  20. AZATHIOPRINE [Concomitant]
  21. PREDNISOLONE [Concomitant]
  22. DURAGESIC-100 [Concomitant]

REACTIONS (3)
  - ARTHRITIS BACTERIAL [None]
  - HISTOPLASMOSIS DISSEMINATED [None]
  - TENOSYNOVITIS [None]
